FAERS Safety Report 8267507-0 (Version None)
Quarter: 2012Q2

REPORT INFORMATION
  Report Type: 
  Country: None (occurrence: None)
  Receive Date: 20120409
  Receipt Date: 20120329
  Transmission Date: 20120825
  Serious: Yes (Other)
  Sender: FDA-Public Use
  Company Number: CA-JNJFOC-20120400399

PATIENT
  Sex: Female
  Weight: 87 kg

DRUGS (1)
  1. REMICADE [Suspect]
     Indication: CROHN'S DISEASE
     Route: 042
     Dates: start: 20071126

REACTIONS (4)
  - FEMALE GENITAL TRACT FISTULA [None]
  - RECTAL HAEMORRHAGE [None]
  - WOUND [None]
  - ABDOMINAL PAIN [None]
